FAERS Safety Report 8845311 (Version 2)
Quarter: 2012Q4

REPORT INFORMATION
  Report Type: Report from Study
  Country: FR (occurrence: FR)
  Receive Date: 20121017
  Receipt Date: 20121102
  Transmission Date: 20130627
  Serious: Yes (Death, Other)
  Sender: FDA-Public Use
  Company Number: FR-PFIZER INC-2012252639

PATIENT
  Age: 46 Year
  Sex: Female
  Weight: 60 kg

DRUGS (4)
  1. ATGAM [Suspect]
     Indication: APLASIA BONE MARROW
     Dosage: 40 mg/kg, per day
     Dates: start: 20111031, end: 20111103
  2. CICLOSPORIN [Concomitant]
     Indication: APLASIA BONE MARROW
     Dosage: UNK
  3. SOLU-MEDROL [Concomitant]
     Indication: APLASIA BONE MARROW
     Dosage: UNK
  4. POLARAMINE [Concomitant]
     Indication: PREMEDICATION
     Dosage: 5 mg Slow IV 1 hour before ATGAM
     Route: 042

REACTIONS (3)
  - Treatment failure [Fatal]
  - Epstein-Barr virus infection [Recovered/Resolved]
  - Candidiasis [Unknown]
